FAERS Safety Report 10174986 (Version 1)
Quarter: 2014Q2

REPORT INFORMATION
  Report Type: Spontaneous
  Country: US (occurrence: US)
  Receive Date: 20140515
  Receipt Date: 20140515
  Transmission Date: 20141212
  Serious: Yes (Life-Threatening)
  Sender: FDA-Public Use
  Company Number: US-ASTRAZENECA-2014SE32855

PATIENT
  Age: 73 Year
  Sex: Female
  Weight: 63.5 kg

DRUGS (14)
  1. LISINOPRIL [Suspect]
     Indication: HYPERTENSION
     Route: 048
     Dates: start: 2007
  2. METOPROLOL SUCCINATE [Suspect]
     Indication: HYPERTENSION
     Dosage: REDDY PHARMACEUTICALS, 50 MG, MORNING
     Route: 048
     Dates: start: 20140512
  3. METOPROLOL SUCCINATE [Suspect]
     Indication: HEART RATE IRREGULAR
     Dosage: REDDY PHARMACEUTICALS, 50 MG, MORNING
     Route: 048
     Dates: start: 20140512
  4. METOPROLOL SUCCINATE [Suspect]
     Indication: HYPERTENSION
     Dosage: REDDY PHARMACEUTICALS, 25 MG, DAILY
     Route: 048
  5. METOPROLOL SUCCINATE [Suspect]
     Indication: HEART RATE IRREGULAR
     Dosage: REDDY PHARMACEUTICALS, 25 MG, DAILY
     Route: 048
  6. METOPROLOL SUCCINATE [Suspect]
     Indication: HYPERTENSION
     Route: 048
     Dates: start: 2005, end: 20140511
  7. METOPROLOL SUCCINATE [Suspect]
     Indication: HEART RATE IRREGULAR
     Route: 048
     Dates: start: 2005, end: 20140511
  8. METOPROLOL SUCCINATE [Suspect]
     Indication: HYPERTENSION
     Route: 048
     Dates: end: 20140511
  9. METOPROLOL SUCCINATE [Suspect]
     Indication: HEART RATE IRREGULAR
     Route: 048
     Dates: end: 20140511
  10. PREDNISONE [Concomitant]
     Indication: MYASTHENIA GRAVIS
     Route: 048
     Dates: start: 2002
  11. PREDNISONE [Concomitant]
     Indication: MYASTHENIA GRAVIS
     Route: 048
     Dates: start: 2002
  12. MESTINON [Concomitant]
     Indication: MYASTHENIA GRAVIS
     Route: 048
     Dates: start: 2004
  13. AMLODIPINE [Concomitant]
     Indication: BLOOD PRESSURE ABNORMAL
     Route: 048
     Dates: start: 2007
  14. EVISTA [Concomitant]
     Indication: OSTEOPENIA
     Route: 048
     Dates: start: 2004

REACTIONS (7)
  - Atrioventricular block complete [Recovered/Resolved]
  - Heart rate increased [Unknown]
  - Dizziness [Unknown]
  - Somnolence [Unknown]
  - Head discomfort [Unknown]
  - Somnolence [Unknown]
  - Intentional product misuse [Unknown]
